FAERS Safety Report 16399136 (Version 1)
Quarter: 2019Q2

REPORT INFORMATION
  Report Type: Report from Study
  Country: US (occurrence: US)
  Receive Date: 20190606
  Receipt Date: 20190606
  Transmission Date: 20190711
  Serious: Yes (Other)
  Sender: FDA-Public Use
  Company Number: US-GILEAD-2019-0412028

PATIENT
  Age: 54 Year
  Sex: Female

DRUGS (1)
  1. RANOLAZINE. [Suspect]
     Active Substance: RANOLAZINE
     Indication: PRODUCT USED FOR UNKNOWN INDICATION
     Route: 065

REACTIONS (7)
  - Foot fracture [Not Recovered/Not Resolved]
  - Amnesia [Unknown]
  - Brain neoplasm [Not Recovered/Not Resolved]
  - Rib fracture [Unknown]
  - Bone deformity [Not Recovered/Not Resolved]
  - Fall [Unknown]
  - Finger deformity [Unknown]
